FAERS Safety Report 4322091-9 (Version None)
Quarter: 2004Q1

REPORT INFORMATION
  Report Type: 
  Country: None (occurrence: None)
  Receive Date: 20040323
  Receipt Date: 20040113
  Transmission Date: 20041129
  Serious: Yes (Hospitalization, Other)
  Sender: FDA-Public Use
  Company Number: FR-GLAXOSMITHKLINE-B0320050A

PATIENT
  Age: 84 Year
  Sex: Female

DRUGS (13)
  1. DEROXAT [Suspect]
     Indication: DEPRESSION
     Route: 048
     Dates: start: 20031115, end: 20040113
  2. CALCIPARINE [Suspect]
     Indication: PULMONARY EMBOLISM
     Dosage: .4UNIT TWICE PER DAY
     Route: 058
     Dates: start: 20040102, end: 20040106
  3. PREVISCAN [Suspect]
     Dosage: 20MG UNKNOWN
     Route: 048
     Dates: start: 20040106
  4. DANAPAROIDE SODIQUE [Suspect]
     Route: 058
     Dates: start: 20040106, end: 20040113
  5. ZOMETA [Concomitant]
     Indication: BREAST CANCER
  6. TRIATEC [Concomitant]
     Dosage: 2.5MG PER DAY
     Route: 048
  7. ARIMIDEX [Concomitant]
     Indication: BREAST CANCER
     Dosage: 1MG PER DAY
     Route: 048
  8. DIGOXIN [Concomitant]
     Route: 048
  9. TRAMADOL HCL [Concomitant]
     Route: 048
  10. FELODIPINE [Concomitant]
     Route: 048
  11. LASIX [Concomitant]
     Dosage: 40MG PER DAY
     Route: 048
  12. CORDARONE [Concomitant]
     Route: 048
  13. OFLOCET [Concomitant]
     Route: 048
     Dates: start: 20040104

REACTIONS (4)
  - HAEMORRHOIDS [None]
  - HEPARIN-INDUCED THROMBOCYTOPENIA [None]
  - PROCTALGIA [None]
  - RECTAL HAEMORRHAGE [None]
